FAERS Safety Report 5009199-X (Version None)
Quarter: 2006Q2

REPORT INFORMATION
  Report Type: 
  Country: None (occurrence: None)
  Receive Date: 20060519
  Receipt Date: 20060510
  Transmission Date: 20061013
  Serious: Yes (Disabling, Other)
  Sender: FDA-Public Use
  Company Number: 2006-03-0233

PATIENT
  Age: 32 Year
  Sex: Male
  Weight: 74 kg

DRUGS (8)
  1. VIRAFERONPEG [Suspect]
     Indication: HEPATITIS C
     Dosage: 96-150UG*WK SUBCUTANEOUS
     Route: 058
     Dates: start: 20040312, end: 20040513
  2. VIRAFERONPEG [Suspect]
     Indication: HEPATITIS C
     Dosage: 96-150UG*WK SUBCUTANEOUS
     Route: 058
     Dates: start: 20040514, end: 20040514
  3. REBETOL [Suspect]
     Indication: HEPATITIS C
     Dosage: 1000 MG QD ORAL
     Route: 048
     Dates: start: 20031105, end: 20040514
  4. SUBUTEX [Concomitant]
  5. TERCIAN [Concomitant]
  6. VALIUM [Concomitant]
  7. STILNOX [Concomitant]
  8. DEROXAT [Concomitant]

REACTIONS (9)
  - ACCIDENTAL OVERDOSE [None]
  - BLINDNESS TRANSIENT [None]
  - CONDITION AGGRAVATED [None]
  - DISEASE RECURRENCE [None]
  - EPISTAXIS [None]
  - HEPATITIS C [None]
  - MIGRAINE WITHOUT AURA [None]
  - VERTIGO [None]
  - VISUAL FIELD DEFECT [None]
